FAERS Safety Report 6314072-0 (Version None)
Quarter: 2009Q3

REPORT INFORMATION
  Report Type: 
  Country: None (occurrence: None)
  Receive Date: 20090818
  Receipt Date: 20090818
  Transmission Date: 20100115
  Serious: Yes (Death, Hospitalization)
  Sender: FDA-Public Use
  Company Number: FR-ABBOTT-09P-056-0562379-00

PATIENT
  Sex: Male

DRUGS (8)
  1. TARKA [Suspect]
     Indication: HYPERTENSION
     Route: 048
     Dates: start: 20090222, end: 20090223
  2. XELEVIA [Concomitant]
     Indication: DRUG USE FOR UNKNOWN INDICATION
  3. STAGID [Concomitant]
     Indication: DRUG USE FOR UNKNOWN INDICATION
  4. FLIXOTIDE [Concomitant]
     Indication: DRUG USE FOR UNKNOWN INDICATION
  5. ELISOR [Concomitant]
     Indication: DRUG USE FOR UNKNOWN INDICATION
  6. SEROPLEX [Concomitant]
     Indication: DRUG USE FOR UNKNOWN INDICATION
  7. VOLTAREN [Concomitant]
     Indication: DRUG USE FOR UNKNOWN INDICATION
  8. IXPRIM [Concomitant]
     Indication: DRUG USE FOR UNKNOWN INDICATION

REACTIONS (8)
  - AGITATION [None]
  - ANGIOEDEMA [None]
  - BLOOD FIBRINOGEN DECREASED [None]
  - CARDIO-RESPIRATORY ARREST [None]
  - METABOLIC ACIDOSIS [None]
  - MULTI-ORGAN FAILURE [None]
  - SYNCOPE [None]
  - THROMBOCYTOPENIA [None]
